FAERS Safety Report 4804732-2 (Version None)
Quarter: 2005Q4

REPORT INFORMATION
  Report Type: 
  Country: None (occurrence: None)
  Receive Date: 20051020
  Receipt Date: 20051017
  Transmission Date: 20060501
  Serious: Yes (Other)
  Sender: FDA-Public Use
  Company Number: NZ-JNJFOC-20051003378

PATIENT
  Sex: Female

DRUGS (4)
  1. RISPERDAL [Suspect]
     Dosage: (DOSE WAS REDUCED FROM 4 MG TO 3 MG DURING THE WEEK PRIOR TO THE REPORT)
     Route: 048
  2. RISPERDAL [Suspect]
     Indication: DRUG USE FOR UNKNOWN INDICATION
     Dosage: (DOSE WAS REDUCED FROM 4 MG TO 3 MG DURING THE WEEK PRIOR TO THE REPORT)
     Route: 048
  3. VALPROATE SODIUM [Suspect]
     Indication: DRUG USE FOR UNKNOWN INDICATION
  4. FLUOXETINE [Concomitant]

REACTIONS (2)
  - NEUTROPHIL COUNT DECREASED [None]
  - SEDATION [None]
